FAERS Safety Report 10040826 (Version 2)
Quarter: 2014Q2

REPORT INFORMATION
  Report Type: Spontaneous
  Country: FR (occurrence: FR)
  Receive Date: 20140327
  Receipt Date: 20140410
  Transmission Date: 20141212
  Serious: Yes (Life-Threatening, Hospitalization)
  Sender: FDA-Public Use
  Company Number: FR-JNJFOC-20140311605

PATIENT
  Age: 64 Year
  Sex: Female
  Weight: 60 kg

DRUGS (3)
  1. STELARA [Suspect]
     Indication: PSORIASIS
     Route: 058
     Dates: end: 20140305
  2. STELARA [Suspect]
     Indication: PSORIASIS
     Route: 058
  3. STELARA [Suspect]
     Indication: PSORIASIS
     Route: 058
     Dates: start: 20131210

REACTIONS (1)
  - Myocardial infarction [Recovering/Resolving]
